FAERS Safety Report 6340266-4 (Version None)
Quarter: 2009Q3

REPORT INFORMATION
  Report Type: 
  Country: None (occurrence: None)
  Receive Date: 20090902
  Receipt Date: 20090820
  Transmission Date: 20100115
  Serious: Yes (Disabling)
  Sender: FDA-Public Use
  Company Number: OSCN-NO-0907S-0369

PATIENT
  Age: 41 Year
  Sex: Male

DRUGS (10)
  1. OMNISCAN [Suspect]
     Indication: RENAL CANCER
     Dosage: NR, SINGLE DOSE, I.V.
     Route: 042
     Dates: start: 20050725, end: 20050725
  2. SEVELAMER HYDROCHLORIDE (RENAGEL) [Concomitant]
  3. CALTAN [Concomitant]
  4. NIFEDIPINE (ADALAT L) [Concomitant]
  5. METHYLDOPE (ALDOMET) [Concomitant]
  6. LEVOGLUTAMIDE, SODIUM GUALENATE (MARZULENE S) [Concomitant]
  7. FAMOTIDINE (GASTER D) [Concomitant]
  8. TRANDOLAPRIL (PRERAN) [Concomitant]
  9. COLESTILAN (CHOLEBINE) [Concomitant]
  10. ALLOPURINOL [Concomitant]

REACTIONS (7)
  - COMPLICATIONS OF TRANSPLANTED KIDNEY [None]
  - DIALYSIS [None]
  - DIARRHOEA [None]
  - HYPERPARATHYROIDISM [None]
  - NEPHROGENIC SYSTEMIC FIBROSIS [None]
  - RAYNAUD'S PHENOMENON [None]
  - RENAL TRANSPLANT [None]
